FAERS Safety Report 4676724-8 (Version None)
Quarter: 2005Q2

REPORT INFORMATION
  Report Type: 
  Country: None (occurrence: None)
  Receive Date: 20050527
  Receipt Date: 20050301
  Transmission Date: 20051028
  Serious: Yes (Hospitalization)
  Sender: FDA-Public Use
  Company Number: FR-ABBOTT-05P-056-0292462-00

PATIENT
  Age: 67 Year
  Sex: Male
  Weight: 75 kg

DRUGS (11)
  1. SECALIP CAPSULES [Suspect]
     Indication: DYSLIPIDAEMIA
     Route: 048
     Dates: start: 19890101, end: 20041222
  2. SEVORANE LIQUID FOR INHALATION [Interacting]
     Indication: ANAESTHESIA
     Dates: start: 20041217, end: 20041217
  3. PANTOPRAZOLE SODIUM [Suspect]
     Indication: GASTROOESOPHAGEAL REFLUX DISEASE
     Route: 048
     Dates: start: 20030101, end: 20041222
  4. PANTOPRAZOLE SODIUM [Suspect]
     Dates: start: 20050118
  5. ACETAMINOPHEN W/ PROPOXYPHENE HCL [Interacting]
     Indication: PAIN
     Route: 048
     Dates: start: 20041218, end: 20041222
  6. CLOXACILLIN SODIUM [Interacting]
     Indication: INFECTION PROPHYLAXIS
     Dates: start: 20041219, end: 20041222
  7. ATROPINE [Interacting]
     Indication: ANAESTHESIA
     Dates: start: 20041217, end: 20041217
  8. MIDAZOLAM HYDROCHLORIDE [Interacting]
     Indication: ANAESTHESIA
     Dates: start: 20041217, end: 20041217
  9. KETAMINE HCL [Interacting]
     Indication: ANAESTHESIA
     Dates: start: 20041217, end: 20041217
  10. PROPOFOL [Interacting]
     Indication: ANAESTHESIA
     Dates: start: 20041217, end: 20041217
  11. ALFUZOSIN HYDROCHLORIDE [Concomitant]
     Indication: BENIGN PROSTATIC HYPERPLASIA
     Dates: start: 20030101

REACTIONS (11)
  - ALANINE AMINOTRANSFERASE INCREASED [None]
  - ARTHROPATHY [None]
  - ASPARTATE AMINOTRANSFERASE INCREASED [None]
  - DRUG INTERACTION [None]
  - HAEMATURIA [None]
  - MUSCLE DISORDER [None]
  - PAIN IN EXTREMITY [None]
  - PROTEINURIA [None]
  - PYOGENIC GRANULOMA [None]
  - RHABDOMYOLYSIS [None]
  - SHOULDER PAIN [None]
